FAERS Safety Report 25570897 (Version 2)
Quarter: 2025Q3

REPORT INFORMATION
  Report Type: Report from Study
  Country: EU (occurrence: EU)
  Receive Date: 20250717
  Receipt Date: 20250729
  Transmission Date: 20251020
  Serious: Yes (Death)
  Sender: ABBVIE
  Company Number: EU-ABBVIE-6375267

PATIENT
  Age: 76 Year
  Sex: Female

DRUGS (2)
  1. CARBIDOPA\LEVODOPA [Suspect]
     Active Substance: CARBIDOPA\LEVODOPA
     Indication: Parkinson^s disease
     Route: 050
     Dates: start: 20171120
  2. CARBIDOPA\LEVODOPA [Suspect]
     Active Substance: CARBIDOPA\LEVODOPA

REACTIONS (5)
  - Gastrointestinal haemorrhage [Fatal]
  - Pneumonia [Fatal]
  - Mucosal irritation [Unknown]
  - Device issue [Unknown]
  - Vomiting [Unknown]

NARRATIVE: CASE EVENT DATE: 20250701
